FAERS Safety Report 7347886-9 (Version None)
Quarter: 2011Q1

REPORT INFORMATION
  Report Type: 
  Country: None (occurrence: None)
  Receive Date: 20110311
  Receipt Date: 20110308
  Transmission Date: 20110831
  Serious: Yes (Hospitalization, Other)
  Sender: FDA-Public Use
  Company Number: JP-PFIZER INC-2011048078

PATIENT
  Age: 41 Year
  Sex: Male

DRUGS (5)
  1. AMLODIPINE [Concomitant]
     Indication: HYPERTENSION
     Dosage: UNK
     Route: 048
  2. LIPITOR [Suspect]
     Dosage: UNK
     Route: 048
  3. OLMETEC [Concomitant]
     Indication: HYPERTENSION
     Dosage: UNK
     Route: 048
  4. ACTOS [Concomitant]
     Indication: DIABETES MELLITUS
     Dosage: UNK
     Route: 048
  5. NORVASC [Suspect]
     Dosage: 2.5 MG, DAILY

REACTIONS (2)
  - RHABDOMYOLYSIS [None]
  - ORTHOPEDIC PROCEDURE [None]
